FAERS Safety Report 23706126 (Version 3)
Quarter: 2024Q2

REPORT INFORMATION
  Report Type: Spontaneous
  Country: PL (occurrence: PL)
  Receive Date: 20240404
  Receipt Date: 20240510
  Transmission Date: 20240715
  Serious: Yes (Other)
  Sender: FDA-Public Use
  Company Number: PL-ABBVIE-5705051

PATIENT
  Age: 71 Year
  Sex: Female

DRUGS (11)
  1. VENETOCLAX [Suspect]
     Active Substance: VENETOCLAX
     Indication: Acute myeloid leukaemia recurrent
     Dosage: 200 MILLIGRAM?STOP: 2023
     Route: 048
     Dates: start: 2023
  2. VENETOCLAX [Suspect]
     Active Substance: VENETOCLAX
     Indication: Acute myeloid leukaemia recurrent
     Dosage: 100 MILLIGRAM
     Route: 048
     Dates: start: 202308
  3. VENETOCLAX [Suspect]
     Active Substance: VENETOCLAX
     Indication: Acute myeloid leukaemia recurrent
     Dosage: 400 MILLIGRAM?START: 2023?STOP: 2023
     Route: 048
  4. THIOTEPA [Concomitant]
     Active Substance: THIOTEPA
     Indication: Transplant
     Dates: start: 202312
  5. AZACITIDINE [Concomitant]
     Active Substance: AZACITIDINE
     Indication: Acute myeloid leukaemia recurrent
     Dosage: 3 TIMES, DRUG END DATE 2023
     Dates: start: 202303
  6. AZACITIDINE [Concomitant]
     Active Substance: AZACITIDINE
     Indication: Acute myeloid leukaemia recurrent
     Dosage: 75 MG/M2
     Dates: start: 202308
  7. FLUDARABINE [Concomitant]
     Active Substance: FLUDARABINE PHOSPHATE
     Indication: Transplant
     Dosage: 150 MILLIGRAM
     Dates: start: 202312
  8. BUSULFAN [Concomitant]
     Active Substance: BUSULFAN
     Indication: Transplant
     Dates: start: 202312
  9. MYCOPHENOLATE MOFETIL STADA [Concomitant]
     Indication: Prophylaxis against graft versus host disease
     Dates: start: 202312
  10. TACROLIMUS [Concomitant]
     Active Substance: TACROLIMUS
     Indication: Prophylaxis against graft versus host disease
     Dates: start: 202312
  11. CYCLOPHOSPHAMIDE [Concomitant]
     Active Substance: CYCLOPHOSPHAMIDE
     Indication: Prophylaxis against graft versus host disease
     Dates: start: 202312

REACTIONS (8)
  - Acute graft versus host disease in skin [Unknown]
  - Vomiting [Unknown]
  - Mucosal inflammation [Unknown]
  - Gamma-glutamyltransferase increased [Unknown]
  - Free fatty acids increased [Unknown]
  - Weight decreased [Unknown]
  - Acute graft versus host disease [Unknown]
  - Transplant [Unknown]

NARRATIVE: CASE EVENT DATE: 20231201
